FAERS Safety Report 25552776 (Version 2)
Quarter: 2025Q4

REPORT INFORMATION
  Report Type: Other
  Country: GB (occurrence: GB)
  Receive Date: 20250715
  Receipt Date: 20251017
  Transmission Date: 20260118
  Serious: Yes (Other)
  Sender: STRIDES
  Company Number: GB-Accord-492699

PATIENT
  Age: 51 Year
  Sex: Male

DRUGS (3)
  1. IBUPROFEN [Suspect]
     Active Substance: IBUPROFEN
     Indication: Product used for unknown indication
     Dosage: 12 GRAM
     Route: 065
  2. QUININE SULFATE [Suspect]
     Active Substance: QUININE SULFATE
     Indication: Product used for unknown indication
     Dosage: 4 GRAM
     Route: 065
  3. MIRTAZAPINE [Suspect]
     Active Substance: MIRTAZAPINE
     Indication: Product used for unknown indication
     Dosage: 270 MILLIGRAM
     Route: 065

REACTIONS (5)
  - Blindness [Recovering/Resolving]
  - Retinal vascular disorder [Unknown]
  - Retinal toxicity [Unknown]
  - Intentional overdose [Unknown]
  - Toxicity to various agents [Unknown]
